FAERS Safety Report 7167961-1 (Version None)
Quarter: 2010Q4

REPORT INFORMATION
  Report Type: 
  Country: None (occurrence: None)
  Receive Date: 20101216
  Receipt Date: 20101208
  Transmission Date: 20110411
  Serious: Yes (Other)
  Sender: FDA-Public Use
  Company Number: US-PFIZER INC-2010168120

PATIENT
  Sex: Male

DRUGS (1)
  1. DILANTIN-125 [Suspect]
     Indication: COMPLEX PARTIAL SEIZURES
     Dosage: UNK
     Dates: start: 19860101

REACTIONS (1)
  - LYMPHOMA [None]
